FAERS Safety Report 9695599 (Version 1)
Quarter: 2013Q4

REPORT INFORMATION
  Report Type: Spontaneous
  Country: US (occurrence: None)
  Receive Date: 20131118
  Receipt Date: 20131118
  Transmission Date: 20140711
  Serious: Yes (Hospitalization)
  Sender: FDA-Public Use
  Company Number: None

PATIENT
  Age: 22 Year
  Sex: Female
  Weight: 56.7 kg

DRUGS (3)
  1. NICOTROL [Suspect]
     Indication: SMOKING CESSATION THERAPY
     Dosage: 10MG CARTRIDGE (4-12/DAY)
     Dates: start: 20130613, end: 20130626
  2. PRENATAL VITAMINS [Concomitant]
  3. NIFEDIPINE [Concomitant]

REACTIONS (6)
  - Grunting [None]
  - Premature separation of placenta [None]
  - Cyanosis neonatal [None]
  - Pallor [None]
  - Epistaxis [None]
  - Maternal drugs affecting foetus [None]
